FAERS Safety Report 25150442 (Version 4)
Quarter: 2025Q2

REPORT INFORMATION
  Report Type: Spontaneous
  Country: US (occurrence: US)
  Receive Date: 20250402
  Receipt Date: 20250505
  Transmission Date: 20250717
  Serious: No
  Sender: PFIZER
  Company Number: US-PFIZER INC-202500067455

PATIENT
  Age: 71 Year
  Sex: Male

DRUGS (1)
  1. GENOTROPIN [Suspect]
     Active Substance: SOMATROPIN
     Dates: start: 202408

REACTIONS (5)
  - Device use error [Unknown]
  - Poor quality device used [Unknown]
  - Device defective [Unknown]
  - Device issue [Unknown]
  - Drug dose omission by device [Unknown]
